FAERS Safety Report 21944239 (Version 2)
Quarter: 2023Q1

REPORT INFORMATION
  Report Type: Report from Study
  Country: IN (occurrence: IN)
  Receive Date: 20230202
  Receipt Date: 20230203
  Transmission Date: 20230417
  Serious: Yes (Death, Other)
  Sender: FDA-Public Use
  Company Number: IN-002147023-NVSC2023IN022426

PATIENT
  Age: 63 Year
  Sex: Male

DRUGS (2)
  1. VOTRIENT [Suspect]
     Active Substance: PAZOPANIB HYDROCHLORIDE
     Indication: Metastatic renal cell carcinoma
     Dosage: 800 MG, QD
     Route: 065
     Dates: start: 20200306
  2. VOTRIENT [Suspect]
     Active Substance: PAZOPANIB HYDROCHLORIDE
     Dosage: 800 MG, QD
     Route: 048
     Dates: start: 20211110

REACTIONS (1)
  - Death [Fatal]

NARRATIVE: CASE EVENT DATE: 20230107
